FAERS Safety Report 15028822 (Version 1)
Quarter: 2018Q2

REPORT INFORMATION
  Report Type: Spontaneous
  Country: US (occurrence: US)
  Receive Date: 20180619
  Receipt Date: 20180619
  Transmission Date: 20180711
  Serious: No
  Sender: FDA-Public Use
  Company Number: US-SA-2018SA156897

PATIENT
  Age: 67 Year
  Sex: Male

DRUGS (1)
  1. ALIROCUMAB [Suspect]
     Active Substance: ALIROCUMAB
     Indication: MULTIPLE SCLEROSIS
     Dosage: 75 MG/ML, QOW
     Route: 058
     Dates: start: 20180104

REACTIONS (1)
  - Dizziness [Unknown]
